FAERS Safety Report 5924945-6 (Version None)
Quarter: 2008Q4

REPORT INFORMATION
  Report Type: 
  Country: None (occurrence: None)
  Receive Date: 20081020
  Receipt Date: 20081020
  Transmission Date: 20090506
  Serious: Yes (Hospitalization, Other)
  Sender: FDA-Public Use
  Company Number: None

PATIENT
  Age: 33 Year
  Sex: Female
  Weight: 72.5755 kg

DRUGS (1)
  1. YASMIN [Suspect]
     Indication: UTERINE LEIOMYOMA
     Dates: start: 20060801, end: 20070809

REACTIONS (1)
  - DEEP VEIN THROMBOSIS [None]
